FAERS Safety Report 7907985-7 (Version None)
Quarter: 2011Q4

REPORT INFORMATION
  Report Type: 
  Country: None (occurrence: None)
  Receive Date: 20111110
  Receipt Date: 20111101
  Transmission Date: 20120403
  Serious: Yes (Other)
  Sender: FDA-Public Use
  Company Number: US-ASTRAZENECA-2011SE62649

PATIENT
  Age: 76 Year
  Sex: Female
  Weight: 72.6 kg

DRUGS (6)
  1. COREG [Concomitant]
     Indication: HYPERTENSION
  2. ANALAPRO [Concomitant]
     Indication: HYPERTENSION
  3. GENEUVIA [Concomitant]
     Indication: DIABETES MELLITUS
  4. CRESTOR [Suspect]
     Route: 048
  5. CRESTOR [Suspect]
     Route: 048
  6. GLEMOCORIDE [Concomitant]
     Indication: DIABETES MELLITUS

REACTIONS (4)
  - HYPERTENSION [None]
  - PELVIC FRACTURE [None]
  - DIABETES MELLITUS [None]
  - FALL [None]
